FAERS Safety Report 8827329 (Version 1)
Quarter: 2012Q4

REPORT INFORMATION
  Report Type: 
  Country: US (occurrence: US)
  Receive Date: 20121005
  Receipt Date: 20121005
  Transmission Date: 20130627
  Serious: No
  Sender: FDA-Public Use
  Company Number: US-BRISTOL-MYERS SQUIBB COMPANY-14951982

PATIENT
  Age: 76 Year
  Sex: Female

DRUGS (1)
  1. AVAPRO [Suspect]
     Indication: BLOOD PRESSURE
     Dosage: 1DF = 150UNS
     Dates: start: 20100122

REACTIONS (2)
  - Blood pressure increased [Unknown]
  - Heart rate irregular [Unknown]
